FAERS Safety Report 19885342 (Version 1)
Quarter: 2021Q3

REPORT INFORMATION
  Report Type: Report from Study
  Country: DE (occurrence: DE)
  Receive Date: 20210927
  Receipt Date: 20210927
  Transmission Date: 20211014
  Serious: Yes (Death, Other)
  Sender: FDA-Public Use
  Company Number: DE-ACCORD-239584

PATIENT
  Sex: Female

DRUGS (5)
  1. GEMCITABINE/GEMCITABINE HYDROCHLORIDE [Suspect]
     Active Substance: GEMCITABINE\GEMCITABINE HYDROCHLORIDE
     Indication: BREAST CANCER METASTATIC
     Dosage: 1700 MG, Q2W
     Route: 042
     Dates: start: 20200406, end: 20200602
  2. KISQALI [Suspect]
     Active Substance: RIBOCICLIB
     Indication: BREAST CANCER METASTATIC
     Dosage: 400 MG, QD (SCHEMA 21 DAYS INTAKE, 7 DAYS PAUSE)
     Route: 048
     Dates: start: 20190710, end: 20200330
  3. AFINITOR [Concomitant]
     Active Substance: EVEROLIMUS
     Indication: BREAST CANCER METASTATIC
     Dosage: 7.5 MG, QD(DAILY DOSE
     Route: 048
     Dates: start: 20200807, end: 20200828
  4. CARBOPLATIN. [Suspect]
     Active Substance: CARBOPLATIN
     Indication: BREAST CANCER METASTATIC
     Dosage: 400 MG, Q2W
     Route: 042
     Dates: start: 20200406, end: 20200608
  5. FULVESTRANT. [Suspect]
     Active Substance: FULVESTRANT
     Indication: BREAST CANCER METASTATIC
     Dosage: 500 MG, QD (OTHER DAY1 , 14, 28 AND THEN EVERY 28 DAYS)
     Route: 042
     Dates: start: 20190611, end: 20200330

REACTIONS (3)
  - Off label use [Unknown]
  - Polyneuropathy [Recovered/Resolved]
  - Neoplasm [Fatal]

NARRATIVE: CASE EVENT DATE: 20200504
